FAERS Safety Report 18794347 (Version 1)
Quarter: 2021Q1

REPORT INFORMATION
  Report Type: Spontaneous
  Country: FR (occurrence: FR)
  Receive Date: 20210127
  Receipt Date: 20210127
  Transmission Date: 20210419
  Serious: Yes (Life-Threatening, Other)
  Sender: FDA-Public Use
  Company Number: FR-PURDUE-USA-2021-0200837

PATIENT
  Age: 70 Year
  Sex: Female
  Weight: 65 kg

DRUGS (6)
  1. VANCOMYCINE                        /00314401/ [Concomitant]
     Active Substance: VANCOMYCIN
     Indication: INFECTION
     Dosage: 900 MG, DAILY
     Route: 041
     Dates: start: 20201210, end: 20201210
  2. OXYCODONE HYDROCHLORIDE. [Suspect]
     Active Substance: OXYCODONE HYDROCHLORIDE
     Indication: PAIN
     Dosage: 40 MG, DAILY
     Route: 048
     Dates: start: 20201210, end: 20201210
  3. LEVOFLOXACINE                      /01278901/ [Concomitant]
     Active Substance: LEVOFLOXACIN
     Indication: INFECTION
     Dosage: 500 MG, DAILY
     Route: 048
     Dates: start: 20201210
  4. OXYCODONE HYDROCHLORIDE. [Suspect]
     Active Substance: OXYCODONE HYDROCHLORIDE
     Dosage: 5 MG, Q4H
     Route: 048
     Dates: start: 20201210, end: 20201210
  5. MORPHINE                           /00036303/ [Suspect]
     Active Substance: MORPHINE HYDROCHLORIDE
     Indication: DRUG TITRATION
     Dosage: 1 MG, 30 MINUTE
     Route: 042
     Dates: start: 20201209, end: 20201210
  6. GENTAMICINE                        /00047101/ [Concomitant]
     Active Substance: GENTAMICIN
     Indication: INFECTION
     Dosage: 180 MG, DAILY
     Route: 041
     Dates: start: 20201210, end: 20201210

REACTIONS (2)
  - Altered state of consciousness [Recovered/Resolved]
  - Hypotension [Recovered/Resolved]

NARRATIVE: CASE EVENT DATE: 20201211
